FAERS Safety Report 18042861 (Version 1)
Quarter: 2020Q3

REPORT INFORMATION
  Report Type: Spontaneous
  Country: US (occurrence: US)
  Receive Date: 20200716
  Receipt Date: 20200716
  Transmission Date: 20201103
  Serious: Yes (Life-Threatening, Hospitalization)
  Sender: FDA-Public Use
  Company Number: None

PATIENT
  Age: 37 Year
  Sex: Male
  Weight: 59 kg

DRUGS (1)
  1. WARFARIN (WARFARIN NA (EXELAN) 5MG TAB) [Suspect]
     Active Substance: WARFARIN SODIUM
     Indication: DEEP VEIN THROMBOSIS
     Route: 048
     Dates: start: 20160507, end: 20190320

REACTIONS (7)
  - International normalised ratio increased [None]
  - Anticoagulation drug level above therapeutic [None]
  - Cough [None]
  - Pericardial effusion [None]
  - Haemorrhage [None]
  - Cardiac tamponade [None]
  - Vomiting [None]

NARRATIVE: CASE EVENT DATE: 20190320
